FAERS Safety Report 9711370 (Version 2)
Quarter: 2014Q2

REPORT INFORMATION
  Report Type: Spontaneous
  Country: US (occurrence: US)
  Receive Date: 20131126
  Receipt Date: 20140510
  Transmission Date: 20141212
  Serious: No
  Sender: FDA-Public Use
  Company Number: US-BRISTOL-MYERS SQUIBB COMPANY-19217124

PATIENT
  Age: 56 Year
  Sex: Female

DRUGS (3)
  1. BYETTA PEN DISPOSABLE [Suspect]
     Indication: TYPE 2 DIABETES MELLITUS
     Dates: start: 201308, end: 20131008
  2. METFORMIN HCL [Suspect]
     Dosage: 1DF:500 UNITS NOS
  3. ZYRTEC [Concomitant]
     Indication: HYPERSENSITIVITY

REACTIONS (5)
  - Blood glucose fluctuation [Unknown]
  - Drug dose omission [Unknown]
  - Weight decreased [Unknown]
  - Weight increased [Unknown]
  - Sinus disorder [Unknown]
